FAERS Safety Report 9791688 (Version 1)
Quarter: 2014Q1

REPORT INFORMATION
  Report Type: Report from Study
  Country: ES (occurrence: ES)
  Receive Date: 20140102
  Receipt Date: 20140102
  Transmission Date: 20141002
  Serious: Yes (Life-Threatening)
  Sender: FDA-Public Use
  Company Number: ES-ROCHE-1323497

PATIENT
  Age: 58 Year
  Sex: Male

DRUGS (4)
  1. RITUXIMAB [Suspect]
     Indication: CHRONIC LYMPHOCYTIC LEUKAEMIA
     Route: 065
  2. BENDAMUSTINE [Suspect]
     Indication: CHRONIC LYMPHOCYTIC LEUKAEMIA
     Route: 042
     Dates: start: 20111010, end: 20120110
  3. BENDAMUSTINE [Suspect]
     Route: 042
  4. ZARZIO [Concomitant]
     Indication: NEUTROPENIA
     Route: 058
     Dates: start: 20120901, end: 20120909

REACTIONS (1)
  - Acute myeloid leukaemia [Recovering/Resolving]
